FAERS Safety Report 7331867-5 (Version None)
Quarter: 2011Q1

REPORT INFORMATION
  Report Type: 
  Country: None (occurrence: None)
  Receive Date: 20110304
  Receipt Date: 20091214
  Transmission Date: 20110831
  Serious: Yes (Other)
  Sender: FDA-Public Use
  Company Number: US-PFIZER INC-2009310572

PATIENT
  Sex: Female
  Weight: 98 kg

DRUGS (10)
  1. NEXIUM [Concomitant]
     Indication: GASTRITIS
     Dosage: 40 MG, 1X/DAY
     Route: 042
  2. ATIVAN [Concomitant]
     Dosage: 2 MG, UNK
     Route: 042
     Dates: start: 20081110
  3. LORTAB [Concomitant]
     Indication: FIBROMYALGIA
     Dosage: 10/500 MG
     Route: 048
     Dates: start: 20080201
  4. DARVOCET-N 100 [Concomitant]
     Dosage: UNK
  5. XANAX [Concomitant]
     Indication: FIBROMYALGIA
     Dosage: 1 MG, AS NEEDED
     Route: 048
     Dates: start: 20080201
  6. MULTI-VITAMINS [Concomitant]
     Dosage: UNK
     Route: 048
  7. SOMA [Concomitant]
     Dosage: 350 MG, AS NEEDED
     Route: 048
     Dates: start: 20080201
  8. ZOFRAN [Concomitant]
     Indication: NAUSEA
     Dosage: 4 MG, EVERY 4 HRS
     Route: 042
  9. DILANTIN [Suspect]
     Indication: GRAND MAL CONVULSION
     Dosage: 300 MG, 1X/DAY
     Route: 048
     Dates: start: 20081101, end: 20081204
  10. DILANTIN [Suspect]
     Dosage: 1 G, UNK
     Route: 042
     Dates: start: 20081110

REACTIONS (1)
  - STEVENS-JOHNSON SYNDROME [None]
